FAERS Safety Report 19177917 (Version 2)
Quarter: 2021Q2

REPORT INFORMATION
  Report Type: Spontaneous
  Country: US (occurrence: US)
  Receive Date: 20210426
  Receipt Date: 20210505
  Transmission Date: 20210717
  Serious: No
  Sender: FDA-Public Use
  Company Number: US-ORGANON-O2104USA001229

PATIENT
  Age: 30 Year
  Sex: Female
  Weight: 58.05 kg

DRUGS (2)
  1. NEXPLANON [Suspect]
     Active Substance: ETONOGESTREL
     Dosage: 1 IMPLANT EVERY THREE YEARS, IN LEFT ARM
     Route: 059
     Dates: end: 20210316
  2. NEXPLANON [Suspect]
     Active Substance: ETONOGESTREL
     Dosage: 1 IMPLANT
     Route: 059
     Dates: start: 20210316

REACTIONS (5)
  - Pain in extremity [Unknown]
  - Implant site fibrosis [Unknown]
  - Complication of device removal [Recovered/Resolved]
  - Implant site scar [Unknown]
  - Hypoaesthesia [Unknown]

NARRATIVE: CASE EVENT DATE: 2021
